FAERS Safety Report 5270134-0 (Version None)
Quarter: 2007Q1

REPORT INFORMATION
  Report Type: 
  Country: None (occurrence: None)
  Receive Date: 20070320
  Receipt Date: 20070315
  Transmission Date: 20070707
  Serious: Yes (Hospitalization)
  Sender: FDA-Public Use
  Company Number: 2007PK00651

PATIENT
  Age: 50 Year
  Sex: Female

DRUGS (15)
  1. SEROQUEL [Suspect]
     Route: 048
     Dates: start: 20060802, end: 20060803
  2. SEROQUEL [Suspect]
     Route: 048
     Dates: start: 20060804
  3. SEROQUEL [Suspect]
     Route: 048
     Dates: end: 20060814
  4. SEROQUEL [Suspect]
     Route: 048
     Dates: start: 20060911, end: 20060911
  5. SEROQUEL [Suspect]
     Route: 048
     Dates: start: 20060912, end: 20060912
  6. QUILONORM RETARD [Suspect]
     Route: 048
     Dates: start: 20060816
  7. ERGENYL [Suspect]
     Dosage: 500 MG TO 1000 MG
     Route: 048
     Dates: start: 20060721, end: 20060817
  8. ERGENYL [Suspect]
     Dosage: 500 MG TO 1000 MG
     Route: 048
     Dates: start: 20060818, end: 20060831
  9. ERGENYL [Suspect]
     Dosage: 500 MG TO 1000 MG
     Route: 048
     Dates: start: 20060901
  10. DIAZEPAM [Concomitant]
     Route: 048
     Dates: start: 20060809, end: 20060830
  11. DIAZEPAM [Concomitant]
     Route: 048
     Dates: start: 20060831, end: 20060901
  12. DIAZEPAM [Concomitant]
     Route: 048
     Dates: start: 20060902, end: 20060918
  13. DIAZEPAM [Concomitant]
     Route: 048
     Dates: start: 20060919
  14. TRIAMTERENE AND HYDROCHLOROTHIAZIDE [Concomitant]
     Dosage: 25 MG TO 50 MG
     Route: 048
     Dates: start: 20060802
  15. LEVOTHYROXINE SODIUM [Concomitant]
     Dosage: SINCE MANY YEARS
     Route: 048

REACTIONS (1)
  - PLEUROTHOTONUS [None]
